FAERS Safety Report 15360052 (Version 1)
Quarter: 2018Q3

REPORT INFORMATION
  Report Type: Spontaneous
  Country: US (occurrence: US)
  Receive Date: 20180907
  Receipt Date: 20180907
  Transmission Date: 20181010
  Serious: Yes (Other)
  Sender: FDA-Public Use
  Company Number: US-DRREDDYS-USA/USA/18/0103739

PATIENT
  Age: 28 Year
  Sex: Female

DRUGS (3)
  1. DILTIAZEM. [Concomitant]
     Active Substance: DILTIAZEM
     Indication: PRODUCT USED FOR UNKNOWN INDICATION
  2. MYCOPHENOLATE MOFETIL. [Suspect]
     Active Substance: MYCOPHENOLATE MOFETIL
     Indication: PRODUCT USED FOR UNKNOWN INDICATION
  3. TACROLIMUS. [Suspect]
     Active Substance: TACROLIMUS
     Indication: PRODUCT USED FOR UNKNOWN INDICATION
     Route: 065

REACTIONS (8)
  - Blood creatinine increased [Unknown]
  - Drug ineffective [Unknown]
  - Abortion spontaneous [Recovered/Resolved]
  - Vomiting [Unknown]
  - Transplant rejection [Unknown]
  - Nausea [Unknown]
  - Drug level below therapeutic [Unknown]
  - Exposure during pregnancy [Unknown]
